FAERS Safety Report 11661641 (Version 2)
Quarter: 2016Q1

REPORT INFORMATION
  Report Type: Spontaneous
  Country: US (occurrence: US)
  Receive Date: 20151026
  Receipt Date: 20160105
  Transmission Date: 20160525
  Serious: No
  Sender: FDA-Public Use
  Company Number: US-PFIZER INC-2015356858

PATIENT
  Age: 63 Year
  Sex: Female

DRUGS (2)
  1. DESVENLAFAXINE SUCCINATE MONOHYDRATE [Suspect]
     Active Substance: DESVENLAFAXINE
     Indication: DEPRESSION
     Dosage: 50 MG, 1X/DAY
     Dates: start: 2014
  2. DIAZEPAM. [Concomitant]
     Active Substance: DIAZEPAM
     Dosage: 5 MG, 1X/DAY (AT BED TIME)

REACTIONS (2)
  - Drug ineffective [Unknown]
  - Product substitution issue [Unknown]
